FAERS Safety Report 9033603 (Version 2)
Quarter: 2013Q3

REPORT INFORMATION
  Report Type: Spontaneous
  Country: US (occurrence: US)
  Receive Date: 20130128
  Receipt Date: 20130730
  Transmission Date: 20140515
  Serious: Yes (Other)
  Sender: FDA-Public Use
  Company Number: US-BAYER-2013-009330

PATIENT
  Age: 60 Year
  Sex: Female
  Weight: 51.7 kg

DRUGS (4)
  1. BETASERON [Suspect]
     Indication: RELAPSING-REMITTING MULTIPLE SCLEROSIS
     Dosage: 0.3 MG, QOD
     Route: 058
     Dates: start: 2001
  2. BACLOFEN [Concomitant]
     Dosage: 10 MG, QD
     Dates: start: 2010
  3. NAMENDA [Concomitant]
     Indication: MEMORY IMPAIRMENT
     Dosage: 10 MG, BID
     Dates: start: 2011
  4. NORVASC [Concomitant]
     Dosage: 10 MG, QD

REACTIONS (2)
  - Injection site necrosis [Recovering/Resolving]
  - Injection site necrosis [Recovering/Resolving]
